FAERS Safety Report 9215179 (Version 1)
Quarter: 2013Q2

REPORT INFORMATION
  Report Type: Report from Study
  Country: NZ (occurrence: NZ)
  Receive Date: 20130405
  Receipt Date: 20130405
  Transmission Date: 20140414
  Serious: Yes (Hospitalization)
  Sender: FDA-Public Use
  Company Number: NZ-AMGEN-US242762

PATIENT
  Age: 77 Year
  Sex: Male
  Weight: 74 kg

DRUGS (8)
  1. DENOSUMAB [Suspect]
     Indication: PROSTATE CANCER
     Dosage: UNK UNK, Q4WK
     Route: 058
     Dates: start: 20061214
  2. MULTIVITAMINS [Concomitant]
  3. ERGOCALCIFEROL [Concomitant]
     Dosage: UNK UNK, UNK
     Dates: start: 20061214
  4. TADALAFIL [Concomitant]
     Dosage: UNK UNK, PRN
     Dates: start: 2000
  5. OMEGA 3 [Concomitant]
     Dosage: UNK UNK, UNK
     Dates: start: 200610
  6. AROPAX [Concomitant]
     Dosage: UNK UNK, UNK
     Dates: start: 200006
  7. SIMVASTATIN [Concomitant]
     Dosage: 20 MG, UNK
  8. CALCIUM CARBONATE [Concomitant]

REACTIONS (1)
  - Atrial fibrillation [Recovered/Resolved with Sequelae]
